FAERS Safety Report 9234455 (Version 1)
Quarter: 2013Q2

REPORT INFORMATION
  Report Type: Spontaneous
  Country: US (occurrence: US)
  Receive Date: 20130416
  Receipt Date: 20130416
  Transmission Date: 20140414
  Serious: Yes (Other)
  Sender: FDA-Public Use
  Company Number: US-GLAXOSMITHKLINE-A1017684A

PATIENT
  Age: 9 Year
  Sex: Male

DRUGS (11)
  1. CETIRIZINE [Concomitant]
  2. ANTIBIOTICS [Concomitant]
  3. ALBUTEROL [Suspect]
     Indication: PRODUCT USED FOR UNKNOWN INDICATION
     Route: 055
  4. VENTOLIN [Suspect]
     Indication: PRODUCT USED FOR UNKNOWN INDICATION
     Route: 055
     Dates: start: 201301
  5. SINGULAIR [Concomitant]
  6. SERTRALINE [Concomitant]
  7. FLOVENT [Concomitant]
  8. FLUTICASONE NASAL SPRAY [Concomitant]
  9. OMEPRAZOLE [Concomitant]
  10. ATENOLOL [Concomitant]
  11. MELATONIN [Concomitant]

REACTIONS (1)
  - Heart rate increased [Not Recovered/Not Resolved]
